FAERS Safety Report 21801418 (Version 1)
Quarter: 2022Q4

REPORT INFORMATION
  Report Type: Report from Study
  Country: US (occurrence: US)
  Receive Date: 20221230
  Receipt Date: 20221230
  Transmission Date: 20230112
  Serious: No
  Sender: FDA-Public Use
  Company Number: US-ABBVIE-4219648

PATIENT
  Age: 58 Year
  Sex: Female

DRUGS (1)
  1. HUMIRA [Suspect]
     Active Substance: ADALIMUMAB
     Indication: Psoriatic arthropathy
     Dosage: CITRATE FREE, STRENGTH - 40MG
     Route: 058

REACTIONS (4)
  - Dizziness [Unknown]
  - Palpitations [Unknown]
  - Chest pain [Unknown]
  - Panic attack [Unknown]

NARRATIVE: CASE EVENT DATE: 20221129
